FAERS Safety Report 8074397-8 (Version None)
Quarter: 2012Q1

REPORT INFORMATION
  Report Type: 
  Country: None (occurrence: None)
  Receive Date: 20120126
  Receipt Date: 20120125
  Transmission Date: 20120608
  Serious: Yes (Other)
  Sender: FDA-Public Use
  Company Number: MW-VIIV HEALTHCARE LIMITED-A0963145A

PATIENT
  Age: 32 Year
  Sex: Female

DRUGS (4)
  1. SUSTIVA [Suspect]
     Indication: ANTIRETROVIRAL THERAPY
     Dates: start: 20110712, end: 20110812
  2. COMBIVIR [Suspect]
     Indication: ANTIRETROVIRAL THERAPY
     Route: 048
     Dates: start: 20110812, end: 20110910
  3. LAMIVUDINE (EPIVIR HBV) [Suspect]
     Indication: ANTIRETROVIRAL THERAPY
     Dosage: 300MGD PER DAY
     Route: 048
     Dates: start: 20110831
  4. ZERIT [Suspect]
     Indication: ANTIRETROVIRAL THERAPY
     Dosage: 60MGD PER DAY
     Route: 048
     Dates: start: 20110831

REACTIONS (2)
  - ABORTION SPONTANEOUS [None]
  - MATERNAL EXPOSURE DURING PREGNANCY [None]
